FAERS Safety Report 4775550-9 (Version None)
Quarter: 2005Q3

REPORT INFORMATION
  Report Type: 
  Country: None (occurrence: None)
  Receive Date: 20050920
  Receipt Date: 20050913
  Transmission Date: 20060218
  Serious: Yes (Other)
  Sender: FDA-Public Use
  Company Number: 2005127474

PATIENT
  Age: 71 Year
  Sex: Female
  Weight: 95.2554 kg

DRUGS (11)
  1. GLUCOTROL [Suspect]
     Indication: DIABETES MELLITUS
     Dosage: 10 MG (5 MG, 2 IN 1 D)
  2. TIAZAC [Concomitant]
  3. LESCOL [Concomitant]
  4. FLONASE [Concomitant]
  5. FOSAMAX [Concomitant]
  6. ADVAIR (FLUTICASONE PROPIONATE) [Concomitant]
  7. MONTELUKAST SODIUM (MONTELUKAST SODIUM) [Concomitant]
  8. TRAZODONE HCL [Concomitant]
  9. ASPIRIN [Concomitant]
  10. ALBUTEROL [Concomitant]
  11. LISINOPRIL [Concomitant]

REACTIONS (1)
  - SHOULDER ARTHROPLASTY [None]
